FAERS Safety Report 7765846-0 (Version None)
Quarter: 2011Q3

REPORT INFORMATION
  Report Type: 
  Country: None (occurrence: None)
  Receive Date: 20110921
  Receipt Date: 20110906
  Transmission Date: 20111222
  Serious: Yes (Hospitalization)
  Sender: FDA-Public Use
  Company Number: US-WATSON-2011-14241

PATIENT
  Age: 75 Year
  Sex: Male
  Weight: 108.8 kg

DRUGS (1)
  1. PREDNISONE [Suspect]
     Indication: RHEUMATOID ARTHRITIS
     Dosage: 10 MG, DAILY
     Route: 048
     Dates: start: 20110701

REACTIONS (7)
  - MUSCLE SPASMS [None]
  - AGITATION [None]
  - PNEUMONIA [None]
  - CHILLS [None]
  - GASTROENTERITIS VIRAL [None]
  - GAIT DISTURBANCE [None]
  - TREMOR [None]
